FAERS Safety Report 24660199 (Version 1)
Quarter: 2024Q4

REPORT INFORMATION
  Report Type: Spontaneous
  Country: US (occurrence: US)
  Receive Date: 20241125
  Receipt Date: 20241125
  Transmission Date: 20250114
  Serious: Yes (Death, Other)
  Sender: AMGEN
  Company Number: US-AMGEN-USASP2024230722

PATIENT

DRUGS (3)
  1. PREDNISONE [Suspect]
     Active Substance: PREDNISONE
     Indication: Hormone-refractory prostate cancer
     Dosage: UNK
     Route: 065
  2. DAROLUTAMIDE [Suspect]
     Active Substance: DAROLUTAMIDE
     Indication: Hormone-refractory prostate cancer
     Dosage: 600 MILLIGRAM, BID
     Route: 048
  3. ABIRATERONE ACETATE [Concomitant]
     Active Substance: ABIRATERONE ACETATE
     Indication: Hormone-refractory prostate cancer

REACTIONS (20)
  - Death [Fatal]
  - Pelvic fracture [Unknown]
  - Skull fracture [Unknown]
  - Craniofacial fracture [Unknown]
  - Spinal fracture [Unknown]
  - Rib fracture [Unknown]
  - Mental impairment [Unknown]
  - Adverse event [Unknown]
  - Limb fracture [Unknown]
  - Fall [Unknown]
  - Rash macular [Unknown]
  - Fatigue [Unknown]
  - Rash maculo-papular [Unknown]
  - Rash papular [Unknown]
  - Rash pustular [Unknown]
  - Dermatitis [Unknown]
  - Joint dislocation [Unknown]
  - Fracture [Unknown]
  - Erythema [Unknown]
  - Hypertension [Unknown]
